FAERS Safety Report 24582788 (Version 1)
Quarter: 2024Q4

REPORT INFORMATION
  Report Type: Report from Study
  Country: US (occurrence: US)
  Receive Date: 20241106
  Receipt Date: 20241106
  Transmission Date: 20250115
  Serious: Yes (Other)
  Sender: JOHNSON AND JOHNSON
  Company Number: US-JNJFOC-20241075419

PATIENT
  Age: 74 Year
  Sex: Female

DRUGS (3)
  1. TRABECTEDIN [Suspect]
     Active Substance: TRABECTEDIN
     Indication: Myxoid liposarcoma
     Route: 065
  2. DOXORUBICIN [Suspect]
     Active Substance: DOXORUBICIN
     Indication: Myxoid liposarcoma
     Route: 065
  3. OLARATUMAB [Suspect]
     Active Substance: OLARATUMAB
     Indication: Myxoid liposarcoma
     Route: 065

REACTIONS (5)
  - Acute kidney injury [Unknown]
  - Dehydration [Unknown]
  - Diarrhoea [Unknown]
  - Nausea [Unknown]
  - Vomiting [Unknown]
